FAERS Safety Report 22659180 (Version 1)
Quarter: 2023Q2

REPORT INFORMATION
  Report Type: Spontaneous
  Country: US (occurrence: US)
  Receive Date: 20230630
  Receipt Date: 20230630
  Transmission Date: 20230721
  Serious: No
  Sender: FDA-Public Use
  Company Number: US-SA-SAC20230629000847

PATIENT
  Age: 71 Year
  Sex: Female

DRUGS (5)
  1. KEVZARA [Suspect]
     Active Substance: SARILUMAB
     Indication: Rheumatoid arthritis
     Dosage: 200 MG, QOW
     Route: 058
     Dates: start: 20230529
  2. PREDNISONE [Concomitant]
     Active Substance: PREDNISONE
  3. TELMISARTAN [Concomitant]
     Active Substance: TELMISARTAN
  4. TIZANIDINE [Concomitant]
     Active Substance: TIZANIDINE
  5. TRAMADOL HCL [Concomitant]
     Active Substance: TRAMADOL HYDROCHLORIDE

REACTIONS (1)
  - Illness [Recovered/Resolved]
